FAERS Safety Report 11285190 (Version 4)
Quarter: 2017Q1

REPORT INFORMATION
  Report Type: Report from Study
  Country: GB (occurrence: GB)
  Receive Date: 20150720
  Receipt Date: 20170117
  Transmission Date: 20170428
  Serious: Yes (Other)
  Sender: FDA-Public Use
  Company Number: GB-SEATTLE GENETICS-2015SGN00610

PATIENT

DRUGS (2)
  1. BRENTUXIMAB VEDOTIN [Suspect]
     Active Substance: BRENTUXIMAB VEDOTIN
     Indication: HODGKIN^S DISEASE
     Dosage: 100 MG, UNK
     Route: 042
     Dates: start: 20131213, end: 20150126
  2. GOSERELIN [Suspect]
     Active Substance: GOSERELIN
     Indication: HODGKIN^S DISEASE
     Dosage: 3.6 MG, UNK
     Route: 058
     Dates: start: 20131030, end: 20150102

REACTIONS (3)
  - Cystitis [Recovered/Resolved]
  - Skin exfoliation [Recovered/Resolved]
  - Anaphylactoid reaction [Recovered/Resolved]

NARRATIVE: CASE EVENT DATE: 20150108
